FAERS Safety Report 21736357 (Version 9)
Quarter: 2024Q2

REPORT INFORMATION
  Report Type: Report from Study
  Country: US (occurrence: US)
  Receive Date: 20221215
  Receipt Date: 20240510
  Transmission Date: 20240716
  Serious: Yes (Hospitalization, Other)
  Sender: FDA-Public Use
  Company Number: US-ABBVIE-4235893

PATIENT
  Sex: Female
  Weight: 78.017 kg

DRUGS (38)
  1. VENCLEXTA [Suspect]
     Active Substance: VENETOCLAX
     Indication: Plasma cell myeloma
     Dosage: FORM STRENGTH: 100 MILLIGRAM?TAKE WITH FOOD AND WATER
     Route: 048
  2. VENCLEXTA [Suspect]
     Active Substance: VENETOCLAX
     Indication: Plasma cell myeloma
     Dosage: FORM STRENGTH: 100  MILLIGRAM?TAKE WITH FOOD AND WATER
     Route: 048
     Dates: start: 202005
  3. VENCLEXTA [Suspect]
     Active Substance: VENETOCLAX
     Indication: Plasma cell myeloma
     Dosage: FORM STRENGTH: 100 MILLIGRAM?8-100 MG TABLETS EVERY DAY
     Route: 048
     Dates: start: 20210122
  4. ROPINIROLE [Concomitant]
     Active Substance: ROPINIROLE
     Indication: Restless legs syndrome
     Dosage: 4 MG ONE TIME BEFORE BED, 2 MG AS NEED ^IF I HAVE IT COME ON LATER
     Route: 048
     Dates: start: 2022
  5. TYLENOL [Concomitant]
     Active Substance: ACETAMINOPHEN
     Indication: Chemotherapy
     Dosage: 650 MG, ONE TABLET IN THE SAME TIMEFRAME, 1 HOUR BEFORE THE INFUSION ;1 HOUR PRIOR TO RECEIVING
     Route: 048
     Dates: start: 2019
  6. KYPROLIS [Concomitant]
     Active Substance: CARFILZOMIB
     Indication: Plasma cell myeloma
     Dosage: FREQUENCY TEXT: 1 TIME EACH WEEK ON MONDAY^S, LAST DOSE WAS 05-DEC-2022
     Route: 042
  7. BENADRYL [Concomitant]
     Active Substance: DIPHENHYDRAMINE HYDROCHLORIDE
     Indication: Chemotherapy
     Dosage: FREQUENCY TEXT: 1 TABLET 1 HOUR PRIOR TO THE IV INFUSION?FORM STRENGTH: 25MG
     Route: 048
  8. ROSUVASTATIN [Concomitant]
     Active Substance: ROSUVASTATIN
     Indication: Product used for unknown indication
  9. DULOXETINE [Concomitant]
     Active Substance: DULOXETINE
     Indication: Spinal pain
     Dosage: FREQUENCY TEXT: DAILY, NIGHT TIME BEFORE BED
     Route: 048
     Dates: start: 2012
  10. LEVOTHYROXINE SODIUM [Concomitant]
     Active Substance: LEVOTHYROXINE SODIUM
     Indication: Hypothyroidism
     Dosage: 112 MICROGRAMS
     Route: 048
     Dates: start: 1962
  11. TIZANIDINE [Concomitant]
     Active Substance: TIZANIDINE
     Indication: Muscle relaxant therapy
     Dosage: FREQUENCY TEXT: 1 TIME AT NIGHT TIME
     Route: 048
  12. ASPIRIN [Concomitant]
     Active Substance: ASPIRIN
     Indication: Headache
     Dosage: FORM STRENGTH: 250 MILLIGRAM
     Route: 048
     Dates: start: 20180419
  13. DEXAMETHASONE [Concomitant]
     Active Substance: DEXAMETHASONE
     Indication: Product used for unknown indication
     Dosage: 20 MG IN TOTAL, TAKES 5, 4MG TABLETS 1 HOUR BEFORE CHEMOTHERAPY?FORM STRENGTH: 4MG
     Route: 048
     Dates: start: 2019
  14. GABAPENTIN [Concomitant]
     Active Substance: GABAPENTIN
     Indication: Nervous system disorder
     Route: 048
     Dates: start: 2012
  15. VALACYCLOVIR HYDROCHLORIDE [Concomitant]
     Active Substance: VALACYCLOVIR HYDROCHLORIDE
     Indication: Stem cell transplant
     Dosage: 1 GRAM, 2 TIMES A DAY  ANTI-VIRAL MEDICATION
     Dates: start: 2012
  16. LISINOPRIL [Concomitant]
     Active Substance: LISINOPRIL
     Indication: Blood pressure measurement
     Route: 048
  17. ONDANSETRON [Concomitant]
     Active Substance: ONDANSETRON
     Indication: Nausea
     Dosage: 4 MG, MAYBE EVERY 8 HOURS OR SO, NOT A REGULAR IT WHEN THE NAUSEA COMES ON TAKE  THAT AND REST
     Route: 048
     Dates: start: 2012
  18. SYNTHROID [Concomitant]
     Active Substance: LEVOTHYROXINE SODIUM
     Indication: Product used for unknown indication
     Dosage: 100MCG
  19. FENOFIBRATE [Concomitant]
     Active Substance: FENOFIBRATE
     Indication: Product used for unknown indication
  20. ACETAMINOPHEN\HYDROCODONE [Concomitant]
     Active Substance: ACETAMINOPHEN\HYDROCODONE
     Indication: Spinal pain
     Dosage: 10 OVER 325, EVERY 4 HOURS
     Route: 048
     Dates: start: 2012
  21. XANAX [Concomitant]
     Active Substance: ALPRAZOLAM
     Indication: Product used for unknown indication
     Dosage: 0.25MG TABLET
     Route: 048
     Dates: start: 20150223
  22. CRESTOR [Concomitant]
     Active Substance: ROSUVASTATIN CALCIUM
     Indication: Product used for unknown indication
     Dosage: 10MG TABLET
     Route: 048
  23. ANTIVERT [Concomitant]
     Active Substance: MECLIZINE HYDROCHLORIDE
     Indication: Dizziness
     Dosage: FORM STRENGTH: 25 MILLIGRAM
     Route: 048
  24. ACIPHEX [Concomitant]
     Active Substance: RABEPRAZOLE SODIUM
     Indication: Product used for unknown indication
     Dosage: EC TABLET?FORM STRENGTH: 20 MILLIGRAM
     Route: 048
  25. NORCO [Concomitant]
     Active Substance: ACETAMINOPHEN\HYDROCODONE BITARTRATE
     Indication: Product used for unknown indication
     Dosage: 10-325MG PER TABLET (1 TAB BY MOUTH 4 TIMES A DAY)
     Route: 048
     Dates: start: 20180419
  26. ZINC GLUCONATE [Concomitant]
     Active Substance: ZINC GLUCONATE
     Indication: Product used for unknown indication
     Dosage: 50MG TABLET
     Route: 048
     Dates: start: 20180419
  27. GLUCOPHAGE [Concomitant]
     Active Substance: METFORMIN HYDROCHLORIDE
     Indication: Product used for unknown indication
     Dosage: 500MG TABLET
     Route: 048
     Dates: start: 20180419
  28. CYMBALTA [Concomitant]
     Active Substance: DULOXETINE HYDROCHLORIDE
     Indication: Product used for unknown indication
     Dosage: DR CAPSULE?FORM STRENGTH: 60 MILLIGRAM
     Route: 048
     Dates: start: 20150223
  29. NEURONTIN [Concomitant]
     Active Substance: GABAPENTIN
     Indication: Product used for unknown indication
     Dosage: 800MG TABLET
     Route: 048
     Dates: start: 20150223
  30. VITAMIN D3 [Concomitant]
     Active Substance: CHOLECALCIFEROL
     Indication: Product used for unknown indication
     Dosage: 100MCG
     Route: 048
     Dates: start: 20150223
  31. COLAZAL [Concomitant]
     Active Substance: BALSALAZIDE DISODIUM
     Indication: Product used for unknown indication
     Dosage: FORM STRENGTH: 750 MILLIGRAM
     Route: 048
  32. ZANAFLEX [Concomitant]
     Active Substance: TIZANIDINE HYDROCHLORIDE
     Indication: Product used for unknown indication
     Dosage: 4MG CAPSULE
     Route: 048
     Dates: start: 20180419
  33. VALTREX [Concomitant]
     Active Substance: VALACYCLOVIR HYDROCHLORIDE
     Indication: Product used for unknown indication
     Dosage: 2 TABS BY MOUTH DAILY
     Route: 048
     Dates: start: 20180419
  34. ZOFRAN [Concomitant]
     Active Substance: ONDANSETRON HYDROCHLORIDE
     Indication: Vomiting
     Dosage: FORM STRENGTH: 8 MILLIGRAM
     Route: 048
  35. LOFIBRA [Concomitant]
     Active Substance: FENOFIBRATE
     Indication: Product used for unknown indication
     Dosage: 160MG
     Route: 048
  36. IMODIUM [Concomitant]
     Active Substance: LOPERAMIDE HYDROCHLORIDE
     Indication: Product used for unknown indication
  37. CIPROFLOXACIN [Concomitant]
     Active Substance: CIPROFLOXACIN
     Indication: Urinary tract infection
     Route: 048
     Dates: start: 2020, end: 202211
  38. VITAMIN B12 [Concomitant]
     Active Substance: CYANOCOBALAMIN
     Indication: Product used for unknown indication
     Dosage: 1000  G
     Dates: start: 20180419

REACTIONS (25)
  - Deafness [Recovering/Resolving]
  - Escherichia infection [Not Recovered/Not Resolved]
  - Hypertension [Not Recovered/Not Resolved]
  - Restless legs syndrome [Not Recovered/Not Resolved]
  - Urinary tract infection [Recovered/Resolved]
  - White blood cell count decreased [Unknown]
  - Hypotension [Not Recovered/Not Resolved]
  - Influenza [Unknown]
  - Fall [Recovered/Resolved]
  - Dizziness [Unknown]
  - Malaise [Not Recovered/Not Resolved]
  - Hypersensitivity [Unknown]
  - Red blood cell count decreased [Unknown]
  - Spinal disorder [Unknown]
  - Abdominal pain upper [Unknown]
  - Brain fog [Not Recovered/Not Resolved]
  - Product use in unapproved indication [Unknown]
  - Amnesia [Not Recovered/Not Resolved]
  - Brain fog [Recovered/Resolved]
  - Pulmonary amyloidosis [Unknown]
  - Incorrect dose administered [Unknown]
  - Vomiting [Unknown]
  - Pneumonia [Unknown]
  - Headache [Not Recovered/Not Resolved]
  - Illness [Not Recovered/Not Resolved]

NARRATIVE: CASE EVENT DATE: 20200101
